FAERS Safety Report 19844110 (Version 1)
Quarter: 2021Q3

REPORT INFORMATION
  Report Type: Spontaneous
  Country: DE (occurrence: DE)
  Receive Date: 20210917
  Receipt Date: 20210917
  Transmission Date: 20211014
  Serious: Yes (Hospitalization, Other)
  Sender: FDA-Public Use
  Company Number: DE-ABBVIE-04P-062-0248680-00

PATIENT
  Age: 39 Year
  Sex: Male
  Weight: 69 kg

DRUGS (17)
  1. RANITIDINE. [Suspect]
     Active Substance: RANITIDINE
     Indication: PROPHYLAXIS AGAINST GASTROINTESTINAL ULCER
     Route: 048
     Dates: end: 20011203
  2. TAXOFIT [Suspect]
     Active Substance: MINERALS\VITAMINS
     Indication: FATIGUE
     Route: 048
     Dates: start: 20011127, end: 20011203
  3. ORFIRIL [Concomitant]
     Active Substance: VALPROATE SODIUM
     Dates: end: 20011113
  4. ERGENYL CHRONO [Suspect]
     Active Substance: VALPROIC ACID
     Indication: EPILEPSY
     Route: 048
     Dates: start: 20011113
  5. SODIUM VALPROATE [Suspect]
     Active Substance: VALPROATE SODIUM
     Route: 048
     Dates: start: 20011113, end: 20011203
  6. CARBAMAZEPINE. [Suspect]
     Active Substance: CARBAMAZEPINE
     Indication: EPILEPSY
     Route: 048
     Dates: start: 1978
  7. PHENYTOIN. [Suspect]
     Active Substance: PHENYTOIN
     Indication: EPILEPSY
     Dosage: BETWEEN 350 AND 400 MG
     Route: 048
     Dates: start: 20011025, end: 2001
  8. METOCLOPRAMIDE. [Suspect]
     Active Substance: METOCLOPRAMIDE
     Indication: NAUSEA
     Dosage: 20 GTT DROPS
     Route: 048
     Dates: start: 20011128, end: 20011203
  9. SODIUM VALPROATE [Suspect]
     Active Substance: VALPROATE SODIUM
     Indication: EPILEPSY
     Route: 048
     Dates: start: 1996, end: 20011112
  10. LEPTILAN [Suspect]
     Active Substance: VALPROATE SODIUM
     Indication: EPILEPSY
     Route: 048
     Dates: start: 20011113, end: 20011203
  11. ORFIRIL [Concomitant]
     Active Substance: VALPROATE SODIUM
     Route: 048
     Dates: start: 1996, end: 20011112
  12. PHENYTOIN. [Suspect]
     Active Substance: PHENYTOIN
     Route: 048
     Dates: start: 2001, end: 20011203
  13. VALERIANA OFFICINALIS EXTRACT [Suspect]
     Active Substance: VALERIAN
     Indication: RESTLESSNESS
     Route: 048
     Dates: start: 20011201, end: 20011203
  14. PARACETAMOL [Suspect]
     Active Substance: ACETAMINOPHEN
     Indication: NASOPHARYNGITIS
     Route: 048
     Dates: start: 20011128, end: 20011203
  15. BALDRIAN?PHYTON [VALERIANA OFFICINALIS EXTRACT] [Suspect]
     Active Substance: VALERIAN
     Indication: RESTLESSNESS
     Route: 048
     Dates: start: 20011201, end: 20011203
  16. CARBAMAZEPINE. [Suspect]
     Active Substance: CARBAMAZEPINE
     Dosage: SUCCESSIVE DOSE DECREASE TO 150 MG
     Route: 048
     Dates: end: 20011112
  17. ORFIRIL [Concomitant]
     Active Substance: VALPROATE SODIUM
     Indication: EPILEPSY
     Route: 048
     Dates: start: 1996, end: 1996

REACTIONS (18)
  - Swelling face [Recovering/Resolving]
  - Stevens-Johnson syndrome [Recovering/Resolving]
  - Macule [Recovering/Resolving]
  - Nasopharyngitis [Unknown]
  - Dysphagia [Unknown]
  - Restlessness [Unknown]
  - Gamma-glutamyltransferase increased [Unknown]
  - Lip swelling [Recovering/Resolving]
  - Oral mucosa erosion [Recovering/Resolving]
  - Nausea [Unknown]
  - Liver function test increased [Unknown]
  - Genital erythema [Recovering/Resolving]
  - Epilepsy [Unknown]
  - Pyrexia [Recovering/Resolving]
  - Aspartate aminotransferase increased [Unknown]
  - Fatigue [Unknown]
  - Pruritus [Recovering/Resolving]
  - Alanine aminotransferase increased [Unknown]

NARRATIVE: CASE EVENT DATE: 20011127
